FAERS Safety Report 21841624 (Version 1)
Quarter: 2023Q1

REPORT INFORMATION
  Report Type: Spontaneous
  Country: DE (occurrence: DE)
  Receive Date: 20230110
  Receipt Date: 20230110
  Transmission Date: 20230417
  Serious: Yes (Death, Congenital Anomaly, Other)
  Sender: FDA-Public Use
  Company Number: None

PATIENT
  Age: 0 Year
  Sex: Male
  Weight: 0.1000 kg

DRUGS (1)
  1. HYDROXYUREA [Suspect]
     Active Substance: HYDROXYUREA
     Indication: Maternal drugs affecting foetus
     Dosage: 0 - 24.2. GESTATIONAL WEEK?DAILY DOSE: 50 MILLIGRAM
     Route: 064

REACTIONS (6)
  - Foetal death [Fatal]
  - Multiple congenital abnormalities [Not Recovered/Not Resolved]
  - Dandy-Walker syndrome [Not Recovered/Not Resolved]
  - Foetal growth restriction [Unknown]
  - Right aortic arch [Unknown]
  - Foetal exposure during pregnancy [Recovered/Resolved]
